FAERS Safety Report 8061964-0 (Version None)
Quarter: 2012Q1

REPORT INFORMATION
  Report Type: 
  Country: None (occurrence: None)
  Receive Date: 20120118
  Receipt Date: 20120110
  Transmission Date: 20120608
  Serious: Yes (Hospitalization)
  Sender: FDA-Public Use
  Company Number: JPI-P-009897

PATIENT
  Age: 58 Year
  Sex: Female
  Weight: 64.8644 kg

DRUGS (22)
  1. LEVOTHYROXINE SODIUM [Concomitant]
  2. LOVAZA [Concomitant]
  3. DICLOFENAC SODIUM [Concomitant]
  4. METHYLPHENIDATE [Concomitant]
  5. METHADONE HCL [Concomitant]
  6. CLONAZEPAM [Suspect]
     Indication: PANIC ATTACK
     Dosage: (2 MG,1 D) ; (1.5 MG,1 D) ; (1 MG)
     Dates: start: 20100210
  7. CLONAZEPAM [Suspect]
     Indication: PANIC ATTACK
     Dosage: (2 MG,1 D) ; (1.5 MG,1 D) ; (1 MG)
     Dates: end: 20100209
  8. MULTI-VITAMINS [Concomitant]
  9. GLUCOSAMINE W/ CHONDROITIN [Concomitant]
  10. XYREM [Suspect]
     Indication: CATAPLEXY
     Dosage: SEE IMAGE
     Route: 048
     Dates: start: 20100209, end: 20100101
  11. XYREM [Suspect]
     Indication: CATAPLEXY
     Dosage: SEE IMAGE
     Route: 048
     Dates: start: 20100101
  12. XYREM [Suspect]
     Indication: CATAPLEXY
     Dosage: SEE IMAGE
     Route: 048
     Dates: start: 20100127, end: 20100208
  13. PRISTIQ [Concomitant]
  14. METHYLPHENIDATE IR [Concomitant]
  15. MONTELUKAST SODIUM [Concomitant]
  16. CALCIUM WITH VITAMIN D [Concomitant]
  17. CALCIFEROL [Concomitant]
  18. DULOXETIME HYDROCHLORIDE [Suspect]
     Indication: DEPRESSION
     Dosage: (60 MG) ; (60 MG),ORAL
     Route: 048
     Dates: start: 20100325
  19. DULOXETIME HYDROCHLORIDE [Suspect]
     Indication: DEPRESSION
     Dosage: (60 MG) ; (60 MG),ORAL
     Route: 048
     Dates: end: 20100201
  20. ESTERIFIED ESTROGENS AND METHYLTESTOSTERONE [Concomitant]
  21. OXYCODONE HCL [Concomitant]
  22. TESTOSTERONE [Concomitant]

REACTIONS (14)
  - TREMOR [None]
  - URINE ODOUR ABNORMAL [None]
  - ANXIETY [None]
  - SOMNOLENCE [None]
  - DEPRESSION [None]
  - SUICIDAL IDEATION [None]
  - BLADDER PAIN [None]
  - DYSKINESIA [None]
  - BLOOD URINE PRESENT [None]
  - SPEECH DISORDER [None]
  - POOR QUALITY SLEEP [None]
  - BALANCE DISORDER [None]
  - PANIC ATTACK [None]
  - INITIAL INSOMNIA [None]
